FAERS Safety Report 13496858 (Version 1)
Quarter: 2017Q2

REPORT INFORMATION
  Report Type: Spontaneous
  Country: HR (occurrence: HR)
  Receive Date: 20170428
  Receipt Date: 20170428
  Transmission Date: 20170830
  Serious: Yes (Other)
  Sender: FDA-Public Use
  Company Number: HR-009507513-1704HRV002377

PATIENT
  Age: 68 Year
  Sex: Male
  Weight: 75 kg

DRUGS (6)
  1. KEYTRUDA [Suspect]
     Active Substance: PEMBROLIZUMAB
     Indication: METASTATIC MALIGNANT MELANOMA
     Dosage: 150 MG, Q3W
     Route: 042
     Dates: start: 20170310
  2. SULFAMETHOXAZOLE (+) TRIMETHOPRIM [Concomitant]
     Active Substance: SULFAMETHOXAZOLE\TRIMETHOPRIM
  3. ACYCLOVIR. [Concomitant]
     Active Substance: ACYCLOVIR
  4. KEYTRUDA [Suspect]
     Active Substance: PEMBROLIZUMAB
     Dosage: 150 MG, Q3W
     Route: 042
     Dates: start: 20170404
  5. OMEPRAZOLE. [Concomitant]
     Active Substance: OMEPRAZOLE
  6. RANITIDINE. [Concomitant]
     Active Substance: RANITIDINE
     Dosage: UNK

REACTIONS (1)
  - Hepatic enzyme increased [Not Recovered/Not Resolved]

NARRATIVE: CASE EVENT DATE: 20170410
